FAERS Safety Report 9840619 (Version 1)
Quarter: 2013Q4

REPORT INFORMATION
  Report Type: Spontaneous
  Country: RU (occurrence: None)
  Receive Date: 20131211
  Receipt Date: 20131211
  Transmission Date: 20140711
  Serious: Yes (Hospitalization)
  Sender: FDA-Public Use
  Company Number: SPV1-2009-01971

PATIENT
  Age: 15 Year
  Sex: Male
  Weight: 20.8 kg

DRUGS (1)
  1. ELAPRASE [Suspect]
     Indication: MUCOPOLYSACCHARIDOSIS II
     Dates: start: 20090910

REACTIONS (2)
  - Urticaria [None]
  - Infusion related reaction [None]
